FAERS Safety Report 5776974-3 (Version None)
Quarter: 2008Q2

REPORT INFORMATION
  Report Type: 
  Country: None (occurrence: None)
  Receive Date: 20080618
  Receipt Date: 20080522
  Transmission Date: 20081010
  Serious: No
  Sender: FDA-Public Use
  Company Number: US-JNJFOC-20080505134

PATIENT
  Age: 57 Year
  Sex: Female
  Weight: 108.86 kg

DRUGS (7)
  1. INVEGA [Suspect]
     Route: 048
  2. INVEGA [Suspect]
     Route: 048
  3. INVEGA [Suspect]
     Indication: DEPRESSION
     Route: 048
  4. TOPAMAX [Concomitant]
     Indication: EPILEPSY
  5. DILANTIN [Concomitant]
     Indication: EPILEPSY
     Route: 048
  6. PREVACID [Concomitant]
  7. CHOLESTEROL MEDICATION [Concomitant]
     Indication: BLOOD CHOLESTEROL

REACTIONS (2)
  - BREAST SWELLING [None]
  - OEDEMA PERIPHERAL [None]
